FAERS Safety Report 23879330 (Version 2)
Quarter: 2024Q2

REPORT INFORMATION
  Report Type: Spontaneous
  Country: US (occurrence: US)
  Receive Date: 20240521
  Receipt Date: 20240531
  Transmission Date: 20240715
  Serious: Yes (Other)
  Sender: FDA-Public Use
  Company Number: US-BIOGEN-2024BI01264667

PATIENT
  Sex: Male
  Weight: 82.9 kg

DRUGS (26)
  1. QALSODY [Suspect]
     Active Substance: TOFERSEN
     Indication: Amyotrophic lateral sclerosis
     Route: 050
  2. ALBUTEROL [Concomitant]
     Active Substance: ALBUTEROL
     Indication: Dyspnoea
     Dosage: AS NEEDED
     Route: 050
  3. CHOLECALCIFEROL [Concomitant]
     Active Substance: CHOLECALCIFEROL
     Indication: Vitamin D decreased
     Route: 050
  4. CITALOPRAM HYDROBROMIDE [Concomitant]
     Active Substance: CITALOPRAM HYDROBROMIDE
     Indication: Mood swings
     Route: 050
  5. CYANOCOBALAMIN [Concomitant]
     Active Substance: CYANOCOBALAMIN
     Indication: Amyotrophic lateral sclerosis
     Route: 050
  6. EMPAGLIFLOZIN [Concomitant]
     Active Substance: EMPAGLIFLOZIN
     Indication: Diabetes mellitus
     Route: 050
  7. GEMFIBROZIL [Concomitant]
     Active Substance: GEMFIBROZIL
     Indication: Hypertriglyceridaemia
     Route: 050
  8. INSULIN ASPART [Concomitant]
     Active Substance: INSULIN ASPART
     Indication: Blood glucose abnormal
     Dosage: 2 UNITS FOR BS 150-200
     Route: 050
  9. INSULIN ASPART [Concomitant]
     Active Substance: INSULIN ASPART
     Dosage: 4 UNTIS FOR BS 201-250
     Route: 050
  10. INSULIN ASPART [Concomitant]
     Active Substance: INSULIN ASPART
     Dosage: 6 UNITS OR BS 251-300
     Route: 050
  11. INSULIN ASPART [Concomitant]
     Active Substance: INSULIN ASPART
     Dosage: 8 FOR BS 301-350
     Route: 050
  12. INSULIN ASPART [Concomitant]
     Active Substance: INSULIN ASPART
     Dosage: 10 UNITS FOR BS 351-400
     Route: 050
  13. INSULIN GLARGINE [Concomitant]
     Active Substance: INSULIN GLARGINE
     Indication: Diabetes mellitus
     Dosage: 10 UNITS
     Route: 050
  14. VASCEPA [Concomitant]
     Active Substance: ICOSAPENT ETHYL
     Indication: Product used for unknown indication
     Dosage: 29M
     Route: 050
  15. LOSARTAN [Concomitant]
     Active Substance: LOSARTAN
     Indication: Cardiac disorder
     Route: 050
  16. METFORMIN HYDROCHLORIDE [Concomitant]
     Active Substance: METFORMIN HYDROCHLORIDE
     Indication: Diabetes mellitus
     Route: 050
  17. METHOCARBAMOL [Concomitant]
     Active Substance: METHOCARBAMOL
     Indication: Muscle spasms
     Dosage: AS NEEDED
     Route: 050
  18. OMEPRAZOLE [Concomitant]
     Active Substance: DONEPEZIL HYDROCHLORIDE\OMEPRAZOLE\OMEPRAZOLE MAGNESIUM
     Indication: Gastrointestinal disorder
     Route: 050
  19. REPATHA [Concomitant]
     Active Substance: EVOLOCUMAB
     Indication: Product used for unknown indication
     Route: 050
  20. NUEDEXTA [Concomitant]
     Active Substance: DEXTROMETHORPHAN HYDROBROMIDE\QUINIDINE SULFATE
     Indication: Affect lability
     Route: 050
  21. RELYVRIO [Concomitant]
     Active Substance: SODIUM PHENYLBUTYRATE\TAURURSODIOL
     Indication: Product used for unknown indication
     Route: 050
  22. RANOLAZINE [Concomitant]
     Active Substance: RANOLAZINE
     Indication: Product used for unknown indication
     Route: 050
  23. NEBIVOLOL [Concomitant]
     Active Substance: NEBIVOLOL
     Indication: Product used for unknown indication
     Route: 050
  24. RILUZOLE [Concomitant]
     Active Substance: RILUZOLE
     Indication: Product used for unknown indication
     Route: 050
  25. CLONAZEPAM [Concomitant]
     Active Substance: CLONAZEPAM
     Indication: Product used for unknown indication
     Dosage: AS NEEDED
     Route: 050
  26. BACLOFEN [Concomitant]
     Active Substance: BACLOFEN
     Indication: Product used for unknown indication
     Dosage: AS NEEDED
     Route: 050

REACTIONS (4)
  - Papilloedema [Not Recovered/Not Resolved]
  - Meningitis aseptic [Not Recovered/Not Resolved]
  - Pulmonary function test decreased [Unknown]
  - Asthenia [Unknown]
